FAERS Safety Report 17197969 (Version 2)
Quarter: 2019Q4

REPORT INFORMATION
  Report Type: Report from Study
  Country: US (occurrence: US)
  Receive Date: 20191225
  Receipt Date: 20191227
  Transmission Date: 20200122
  Serious: No
  Sender: FDA-Public Use
  Company Number: NVSC2019US046799

PATIENT
  Age: 77 Year
  Sex: Female

DRUGS (2)
  1. BEOVU [Suspect]
     Active Substance: BROLUCIZUMAB-DBLL
     Indication: NEOVASCULAR AGE-RELATED MACULAR DEGENERATION
     Dosage: 6 MG, QMO
     Route: 047
     Dates: start: 20191217
  2. BEOVU [Suspect]
     Active Substance: BROLUCIZUMAB-DBLL
     Dosage: UNK
     Route: 065
     Dates: start: 20191218

REACTIONS (12)
  - Sleep disorder [Unknown]
  - Migraine [Unknown]
  - Eye disorder [Unknown]
  - Fatigue [Unknown]
  - Pruritus [Unknown]
  - Dyspnoea [Not Recovered/Not Resolved]
  - Pain [Unknown]
  - Eye irritation [Unknown]
  - Autonomic nervous system imbalance [Unknown]
  - Metamorphopsia [Unknown]
  - Chest discomfort [Unknown]
  - Somnolence [Unknown]

NARRATIVE: CASE EVENT DATE: 20191217
